FAERS Safety Report 8100499-3 (Version None)
Quarter: 2012Q1

REPORT INFORMATION
  Report Type: 
  Country: None (occurrence: None)
  Receive Date: 20120129
  Receipt Date: 20111121
  Transmission Date: 20120608
  Serious: No
  Sender: FDA-Public Use
  Company Number: US-ABBOTT-11P-163-0873166-00

PATIENT
  Sex: Male
  Weight: 33.596 kg

DRUGS (4)
  1. HUMIRA [Suspect]
     Indication: CROHN'S DISEASE
     Dates: start: 20111103
  2. M.V.I. [Concomitant]
     Indication: PRODUCT USED FOR UNKNOWN INDICATION
     Route: 048
  3. IRON [Concomitant]
     Indication: ROUTINE HEALTH MAINTENANCE
     Route: 048
  4. IMURAN [Concomitant]
     Indication: CROHN'S DISEASE

REACTIONS (10)
  - NASAL DISCHARGE DISCOLOURATION [None]
  - OVERDOSE [None]
  - NASOPHARYNGITIS [None]
  - INFLUENZA LIKE ILLNESS [None]
  - SKIN BACTERIAL INFECTION [None]
  - UPPER RESPIRATORY TRACT INFECTION [None]
  - OFF LABEL USE [None]
  - PYREXIA [None]
  - NASAL CONGESTION [None]
  - HEADACHE [None]
